FAERS Safety Report 4590943-0 (Version None)
Quarter: 2005Q1

REPORT INFORMATION
  Report Type: 
  Country: None (occurrence: None)
  Receive Date: 20050217
  Receipt Date: 20050202
  Transmission Date: 20050727
  Serious: Yes (Hospitalization)
  Sender: FDA-Public Use
  Company Number: 2005-0008013

PATIENT
  Age: 41 Year
  Sex: Male

DRUGS (5)
  1. VIREAD [Suspect]
  2. ATAZANAVIR (ATAZANAVIR) (300 MG) [Suspect]
     Indication: HIV INFECTION
     Dosage: 300 MG, 1 IN 1 D, ORAL
     Route: 048
     Dates: end: 20040309
  3. RITONAVIR [Concomitant]
  4. STAVUDINE [Concomitant]
  5. LAMIVUDINE [Concomitant]

REACTIONS (3)
  - NEPHROPATHY TOXIC [None]
  - PNEUMOCYSTIS JIROVECI PNEUMONIA [None]
  - RENAL IMPAIRMENT [None]
